FAERS Safety Report 6028980-1 (Version None)
Quarter: 2009Q1

REPORT INFORMATION
  Report Type: 
  Country: None (occurrence: None)
  Receive Date: 20090106
  Receipt Date: 20081223
  Transmission Date: 20090719
  Serious: Yes (Other)
  Sender: FDA-Public Use
  Company Number: US-AVENTIS-200817813US

PATIENT
  Sex: Female

DRUGS (4)
  1. APIDRA [Suspect]
     Dosage: DOSE: UNK
     Route: 058
  2. OPTICLIK (INSULIN INJECTION PEN) [Suspect]
     Dosage: DOSE: UNK
     Dates: start: 20060101
  3. LANTUS [Suspect]
     Dosage: DOSE: UNK
     Route: 058
  4. OPTICLIK (INSULIN INJECTION PEN) [Suspect]

REACTIONS (3)
  - ACCIDENTAL OVERDOSE [None]
  - DEVICE FAILURE [None]
  - WRONG DRUG ADMINISTERED [None]
